FAERS Safety Report 7753708-4 (Version None)
Quarter: 2011Q3

REPORT INFORMATION
  Report Type: 
  Country: None (occurrence: None)
  Receive Date: 20110915
  Receipt Date: 20110915
  Transmission Date: 20111222
  Serious: Yes (Hospitalization)
  Sender: FDA-Public Use
  Company Number: None

PATIENT
  Sex: Female
  Weight: 72.121 kg

DRUGS (1)
  1. SORIATANE [Suspect]
     Indication: MALIGNANT MELANOMA
     Dosage: 1 CAP
     Route: 048
     Dates: start: 20110910, end: 20110913

REACTIONS (6)
  - LOSS OF CONSCIOUSNESS [None]
  - CHEST PAIN [None]
  - NASOPHARYNGITIS [None]
  - HYPOAESTHESIA [None]
  - HEART RATE IRREGULAR [None]
  - THROMBOSIS [None]
